FAERS Safety Report 9357637 (Version 1)
Quarter: 2013Q2

REPORT INFORMATION
  Report Type: Spontaneous
  Country: GR (occurrence: GR)
  Receive Date: 20130620
  Receipt Date: 20130620
  Transmission Date: 20140414
  Serious: Yes (Other)
  Sender: FDA-Public Use
  Company Number: GR-ELI_LILLY_AND_COMPANY-GR201306003725

PATIENT
  Age: 14 Month
  Sex: Female

DRUGS (4)
  1. ZYPREXA [Suspect]
     Indication: SCHIZOPHRENIA
     Dosage: 5 MG, UNK
     Route: 064
  2. ZYPREXA [Suspect]
     Dosage: 2.5 MG, UNK
     Route: 064
  3. THYROHORMONE [Concomitant]
     Indication: HYPERTHYROIDISM
     Route: 064
  4. UTROGESTAN [Concomitant]
     Indication: PREMATURE SEPARATION OF PLACENTA
     Dosage: 200 MG, UNK
     Route: 064

REACTIONS (3)
  - Convulsion [Not Recovered/Not Resolved]
  - Pyrexia [Not Recovered/Not Resolved]
  - Foetal exposure during pregnancy [Recovered/Resolved]
